FAERS Safety Report 5941433-1 (Version None)
Quarter: 2008Q4

REPORT INFORMATION
  Report Type: 
  Country: None (occurrence: None)
  Receive Date: 20081103
  Receipt Date: 20081103
  Transmission Date: 20090506
  Serious: No
  Sender: FDA-Public Use
  Company Number: None

PATIENT
  Age: 57 Year
  Sex: Male
  Weight: 88.4514 kg

DRUGS (2)
  1. CHANTIX [Suspect]
     Indication: SMOKING CESSATION THERAPY
     Dosage: .5MG QD X3;THEN BIDX4 PO
     Route: 048
     Dates: start: 20071030, end: 20080130
  2. CHANTIX [Suspect]
     Dosage: 1MG BID X 81 DAYS PO
     Route: 048

REACTIONS (4)
  - ARTERIAL STENOSIS [None]
  - CARDIAC DISORDER [None]
  - CAROTID ARTERY STENOSIS [None]
  - TYPE 2 DIABETES MELLITUS [None]
